FAERS Safety Report 9719946 (Version 2)
Quarter: 2014Q1

REPORT INFORMATION
  Report Type: Spontaneous
  Country: US (occurrence: US)
  Receive Date: 20131128
  Receipt Date: 20140110
  Transmission Date: 20141002
  Serious: Yes (Other)
  Sender: FDA-Public Use
  Company Number: US-JNJFOC-20131113824

PATIENT
  Sex: Female

DRUGS (3)
  1. NUCYNTA [Suspect]
     Indication: BACK DISORDER
     Route: 048
  2. NUCYNTA [Suspect]
     Indication: BACK DISORDER
     Route: 048
  3. NUCYNTA [Suspect]
     Indication: BACK DISORDER
     Route: 048

REACTIONS (5)
  - Hallucination [Recovered/Resolved]
  - Surgery [Unknown]
  - Drug ineffective [Recovered/Resolved]
  - Fatigue [Recovered/Resolved]
  - Feeling abnormal [Recovered/Resolved]
